FAERS Safety Report 14803921 (Version 1)
Quarter: 2018Q2

REPORT INFORMATION
  Report Type: Spontaneous
  Country: CH (occurrence: CH)
  Receive Date: 20180425
  Receipt Date: 20180425
  Transmission Date: 20180711
  Serious: Yes (Hospitalization)
  Sender: FDA-Public Use
  Company Number: CH-TEVA-2018-CH-885097

PATIENT
  Age: 96 Year
  Sex: Female
  Weight: 36.4 kg

DRUGS (3)
  1. TRAMADOL MEPHA TROPFEN [Suspect]
     Active Substance: TRAMADOL
     Route: 048
     Dates: start: 2018, end: 201803
  2. HALDOL [Suspect]
     Active Substance: HALOPERIDOL
     Route: 048
     Dates: end: 201803
  3. PREDNISON STREULI 5 MG TABLETTEN [Concomitant]
     Active Substance: PREDNISONE
     Route: 048

REACTIONS (2)
  - Psychomotor hyperactivity [Recovered/Resolved]
  - Hallucination, visual [Recovered/Resolved]

NARRATIVE: CASE EVENT DATE: 201803
